FAERS Safety Report 12878354 (Version 2)
Quarter: 2016Q4

REPORT INFORMATION
  Report Type: Spontaneous
  Country: US (occurrence: US)
  Receive Date: 20161024
  Receipt Date: 20161227
  Transmission Date: 20170207
  Serious: Yes (Hospitalization, Other)
  Sender: FDA-Public Use
  Company Number: US-JNJFOC-20161017541

PATIENT
  Age: 75 Year
  Sex: Female

DRUGS (9)
  1. XARELTO [Suspect]
     Active Substance: RIVAROXABAN
     Indication: ATRIAL FIBRILLATION
     Route: 048
     Dates: start: 20130128, end: 201302
  2. XARELTO [Suspect]
     Active Substance: RIVAROXABAN
     Indication: THROMBOSIS PROPHYLAXIS
     Route: 048
     Dates: end: 201303
  3. XARELTO [Suspect]
     Active Substance: RIVAROXABAN
     Indication: CEREBROVASCULAR ACCIDENT PROPHYLAXIS
     Route: 048
     Dates: start: 20130128, end: 201302
  4. XARELTO [Suspect]
     Active Substance: RIVAROXABAN
     Indication: MITRAL VALVE INCOMPETENCE
     Route: 048
     Dates: end: 201303
  5. XARELTO [Suspect]
     Active Substance: RIVAROXABAN
     Indication: MITRAL VALVE INCOMPETENCE
     Route: 048
     Dates: start: 20130128, end: 201302
  6. XARELTO [Suspect]
     Active Substance: RIVAROXABAN
     Indication: ATRIAL FIBRILLATION
     Route: 048
     Dates: end: 201303
  7. XARELTO [Suspect]
     Active Substance: RIVAROXABAN
     Indication: THROMBOSIS PROPHYLAXIS
     Route: 048
     Dates: start: 20130128, end: 201302
  8. XARELTO [Suspect]
     Active Substance: RIVAROXABAN
     Indication: CEREBROVASCULAR ACCIDENT PROPHYLAXIS
     Route: 048
     Dates: end: 201303
  9. BABY ASPIRIN [Suspect]
     Active Substance: ASPIRIN
     Indication: MITRAL VALVE INCOMPETENCE
     Route: 065

REACTIONS (2)
  - Postmenopausal haemorrhage [Recovering/Resolving]
  - Myocardial infarction [Unknown]

NARRATIVE: CASE EVENT DATE: 201302
